FAERS Safety Report 7919482-3 (Version None)
Quarter: 2011Q4

REPORT INFORMATION
  Report Type: 
  Country: None (occurrence: None)
  Receive Date: 20111117
  Receipt Date: 20111107
  Transmission Date: 20120403
  Serious: No
  Sender: FDA-Public Use
  Company Number: US-PFIZER INC-2011256181

PATIENT
  Sex: Male
  Weight: 86.168 kg

DRUGS (5)
  1. TOVIAZ [Suspect]
     Indication: PROSTATIC DISORDER
     Dosage: 8 MG, DAILY
     Route: 048
     Dates: start: 20111001
  2. TOVIAZ [Suspect]
     Indication: PROSTATIC OPERATION
  3. SYNTHROID [Concomitant]
     Indication: THYROID DISORDER
     Dosage: 125 UG, DAILY
     Route: 048
  4. TOVIAZ [Suspect]
     Indication: BLADDER DISORDER
     Dosage: 4 MG, 1X/DAY
     Route: 048
     Dates: start: 20111019
  5. TOVIAZ [Suspect]
     Indication: URINARY INCONTINENCE

REACTIONS (2)
  - CONSTIPATION [None]
  - DRUG INEFFECTIVE [None]
